FAERS Safety Report 11052380 (Version 2)
Quarter: 2021Q1

REPORT INFORMATION
  Report Type: Report from Study
  Country: MX (occurrence: MX)
  Receive Date: 20150421
  Receipt Date: 20210101
  Transmission Date: 20210419
  Serious: Yes (Life-Threatening)
  Sender: FDA-Public Use
  Company Number: PHHY2013MX098274

PATIENT
  Age: 69 Year
  Sex: Female
  Weight: 90 kg

DRUGS (7)
  1. CONCOR [Concomitant]
     Active Substance: BISOPROLOL FUMARATE
     Indication: PRODUCT USED FOR UNKNOWN INDICATION
     Dosage: 1 DF, QD (MORNING)
     Route: 065
     Dates: start: 2011
  2. ACTONEL [Concomitant]
     Active Substance: RISEDRONATE SODIUM
     Indication: OSTEOPOROSIS
     Dosage: 1 DF, QD
     Route: 065
  3. CO?DIOVAN [Suspect]
     Active Substance: HYDROCHLOROTHIAZIDE\VALSARTAN
     Dosage: 1 DF, QD (220/25 MG)
     Route: 048
     Dates: start: 2016
  4. CO?DIOVAN [Suspect]
     Active Substance: HYDROCHLOROTHIAZIDE\VALSARTAN
     Indication: HYPERTENSION
     Dosage: 1 DF, QD (320/ 25 MG)
     Route: 065
  5. REDUCTIL [Concomitant]
     Active Substance: SIBUTRAMINE HYDROCHLORIDE
     Indication: PRODUCT USED FOR UNKNOWN INDICATION
     Route: 065
  6. LYRICA [Concomitant]
     Active Substance: PREGABALIN
     Indication: PRODUCT USED FOR UNKNOWN INDICATION
     Route: 065
  7. LIPITOR [Concomitant]
     Active Substance: ATORVASTATIN CALCIUM
     Indication: CARDIAC DISORDER
     Dosage: DF UNKNOWN (40 MG), QD (AT NIGHT)
     Route: 065

REACTIONS (7)
  - General physical health deterioration [Unknown]
  - Gait disturbance [Unknown]
  - Blood pressure increased [Unknown]
  - Hypoacusis [Not Recovered/Not Resolved]
  - Pain in extremity [Unknown]
  - Memory impairment [Unknown]
  - Ear infection [Not Recovered/Not Resolved]

NARRATIVE: CASE EVENT DATE: 20130903
